FAERS Safety Report 7365345-4 (Version None)
Quarter: 2011Q1

REPORT INFORMATION
  Report Type: 
  Country: None (occurrence: None)
  Receive Date: 20110322
  Receipt Date: 20110314
  Transmission Date: 20110831
  Serious: No
  Sender: FDA-Public Use
  Company Number: US-BIOGENIDEC-2011BI009790

PATIENT
  Sex: Female

DRUGS (1)
  1. TYSABRI [Suspect]
     Indication: MULTIPLE SCLEROSIS
     Route: 042
     Dates: start: 20101206, end: 20110202

REACTIONS (5)
  - NAUSEA [None]
  - HEADACHE [None]
  - INFLUENZA LIKE ILLNESS [None]
  - FATIGUE [None]
  - DEPRESSION [None]
